FAERS Safety Report 10891050 (Version 2)
Quarter: 2015Q1

REPORT INFORMATION
  Report Type: Report from Study
  Country: SE (occurrence: SE)
  Receive Date: 20150305
  Receipt Date: 20150312
  Transmission Date: 20150721
  Serious: Yes (Life-Threatening, Hospitalization)
  Sender: FDA-Public Use
  Company Number: SE-TEVA-545105USA

PATIENT
  Age: 68 Year
  Sex: Male

DRUGS (23)
  1. RITUXIMAB [Suspect]
     Active Substance: RITUXIMAB
     Indication: B-CELL LYMPHOMA
     Dosage: UNK UNK, UNKNOWN FREQ.
     Route: 065
     Dates: start: 20140326, end: 20141029
  2. OMEPRAZOLE. [Concomitant]
     Active Substance: OMEPRAZOLE
     Indication: IRRITABLE BOWEL SYNDROME
     Route: 048
     Dates: start: 2004
  3. PIPERACILLIN AND TAZOBACTAM [Concomitant]
     Active Substance: PIPERACILLIN SODIUM\TAZOBACTAM SODIUM
     Indication: INFECTION
     Route: 042
     Dates: start: 20140916, end: 20140919
  4. SODIUM PICOSULFATE [Concomitant]
     Active Substance: SODIUM PICOSULFATE
     Indication: CONSTIPATION
     Dosage: 5-10 DROPS EVERY 24 HOURS
     Route: 048
     Dates: start: 20140617, end: 20140918
  5. RITUXIMAB [Suspect]
     Active Substance: RITUXIMAB
     Indication: B-CELL LYMPHOMA
     Dosage: 790 MG, EVERY 28TH DAY
     Route: 042
     Dates: start: 20140326, end: 20141029
  6. CODEIN [Suspect]
     Active Substance: CODEINE
     Route: 048
     Dates: start: 20140930, end: 20141012
  7. DALTEPARIN SODIUM [Concomitant]
     Active Substance: DALTEPARIN SODIUM
     Indication: THROMBOSIS
     Dosage: 5000 IU, EVERY 24 HOURS
     Route: 058
     Dates: start: 20140916, end: 20141010
  8. CLEMASTIN [Concomitant]
     Active Substance: CLEMASTINE
     Indication: HYPERSENSITIVITY
     Route: 042
     Dates: start: 20140326, end: 20140327
  9. CODEIN [Suspect]
     Active Substance: CODEINE
     Indication: ABDOMINAL PAIN
     Dosage: 1-2, AS NEEDED
     Route: 048
     Dates: start: 20140221
  10. METRONIDAZOLE. [Concomitant]
     Active Substance: METRONIDAZOLE
     Indication: PROPHYLAXIS
     Dosage: 1 G, ONCE
     Route: 042
     Dates: start: 20140916, end: 20140917
  11. PARACETAMOL [Concomitant]
     Active Substance: ACETAMINOPHEN
     Indication: ABDOMINAL PAIN
     Route: 048
     Dates: start: 20140108
  12. SULFAMETHOXAZOLE-TRIMETHOPRIM (SMZ) [Concomitant]
     Active Substance: SULFAMETHOXAZOLE\TRIMETHOPRIM
     Indication: PROPHYLAXIS
     Dosage: 260 ML, ONCE
     Route: 042
     Dates: start: 20140916, end: 20140917
  13. NALOXONE HCL W/OXYCODONE HCL [Concomitant]
     Indication: PAIN
     Dosage: 10MG/5MG, EVERY 12 HOURS
     Route: 048
     Dates: start: 20140917, end: 20140930
  14. BENDAMUSTINE HYDROCHLORIDE [Suspect]
     Active Substance: BENDAMUSTINE HYDROCHLORIDE
     Indication: B-CELL LYMPHOMA
     Dosage: UNK UNK, UNKNOWN FREQ.
     Route: 042
  15. PARACETAMOL [Concomitant]
     Active Substance: ACETAMINOPHEN
     Indication: PAIN
     Route: 048
     Dates: start: 20140916
  16. METOCLOPRAMIDE. [Concomitant]
     Active Substance: METOCLOPRAMIDE
     Indication: NAUSEA
     Route: 048
     Dates: start: 20140319
  17. POTASSIUM CHLORIDE. [Concomitant]
     Active Substance: POTASSIUM CHLORIDE
     Indication: CONSTIPATION
     Dosage: 1 SACHET, AS NEEDED
     Route: 048
     Dates: start: 20140604, end: 20140926
  18. METHSCOPOLAMINE BROMIDE. [Suspect]
     Active Substance: METHSCOPOLAMINE BROMIDE
     Indication: ABDOMINAL PAIN
     Dosage: 1, UNK, AS NEEDED
     Route: 054
     Dates: start: 20140109, end: 20141002
  19. OXICODONA HUMAX [Concomitant]
     Indication: ABDOMINAL PAIN
     Route: 048
     Dates: start: 20140108
  20. OXICODONA HUMAX [Concomitant]
     Indication: PAIN
     Route: 048
     Dates: start: 20140930, end: 20141009
  21. OXICODONA HUMAX [Concomitant]
     Route: 048
     Dates: start: 20141009, end: 20141112
  22. CLEMASTIN [Concomitant]
     Active Substance: CLEMASTINE
     Route: 042
     Dates: start: 20140716
  23. BETAMETASON [Concomitant]
     Indication: NAUSEA
     Route: 042
     Dates: start: 20140326

REACTIONS (2)
  - Ileal perforation [Recovered/Resolved with Sequelae]
  - Abdominal pain [Recovered/Resolved with Sequelae]

NARRATIVE: CASE EVENT DATE: 20140331
